FAERS Safety Report 25934352 (Version 2)
Quarter: 2025Q4

REPORT INFORMATION
  Report Type: Report from Study
  Country: US (occurrence: US)
  Receive Date: 20251017
  Receipt Date: 20251030
  Transmission Date: 20260117
  Serious: Yes (Hospitalization, Other)
  Sender: ABBVIE
  Company Number: US-ABBVIE-6506996

PATIENT
  Age: 67 Year
  Sex: Female
  Weight: 48.987 kg

DRUGS (7)
  1. VYALEV [Suspect]
     Active Substance: FOSCARBIDOPA\FOSLEVODOPA
     Indication: Parkinson^s disease
     Dosage: 24 HOUR INFUSION
     Route: 058
     Dates: start: 20250911
  2. ALPRAZOLAM [Concomitant]
     Active Substance: ALPRAZOLAM
     Indication: Anxiety
  3. FLUDROCORTISONE [Concomitant]
     Active Substance: FLUDROCORTISONE
     Indication: Hypotension
  4. SENNA [Concomitant]
     Active Substance: SENNOSIDES
     Indication: Constipation
  5. SEROQUEL [Concomitant]
     Active Substance: QUETIAPINE FUMARATE
     Indication: Anxiety
  6. MIDODRINE [Concomitant]
     Active Substance: MIDODRINE
     Indication: Hypotension
  7. MIRTAZAPINE [Concomitant]
     Active Substance: MIRTAZAPINE
     Indication: Sleep disorder

REACTIONS (4)
  - Metastatic neoplasm [Not Recovered/Not Resolved]
  - Vertebral lesion [Not Recovered/Not Resolved]
  - Bone lesion [Not Recovered/Not Resolved]
  - Dyspnoea [Recovered/Resolved]

NARRATIVE: CASE EVENT DATE: 20251007
